FAERS Safety Report 9860541 (Version 1)
Quarter: 2014Q1

REPORT INFORMATION
  Report Type: Spontaneous
  Country: US (occurrence: US)
  Receive Date: 20140202
  Receipt Date: 20140202
  Transmission Date: 20141002
  Serious: Yes (Other)
  Sender: FDA-Public Use
  Company Number: US-TEVA-459860USA

PATIENT
  Age: 32 Year
  Sex: Female
  Weight: 42.68 kg

DRUGS (2)
  1. PARAGARD 380A [Suspect]
     Indication: POST COITAL CONTRACEPTION
     Route: 015
     Dates: start: 20110909, end: 20140117
  2. PRENATAL VITAMINS [Suspect]
     Indication: VITAMIN SUPPLEMENTATION

REACTIONS (2)
  - Device dislocation [Recovered/Resolved]
  - Pelvic pain [Recovered/Resolved]
